FAERS Safety Report 9768879 (Version 2)
Quarter: 2013Q4

REPORT INFORMATION
  Report Type: Spontaneous
  Country: JP (occurrence: None)
  Receive Date: 20131216
  Receipt Date: 20131226
  Transmission Date: 20140711
  Serious: Yes (Death, Other)
  Sender: FDA-Public Use
  Company Number: ADR-2013-02272

PATIENT
  Age: 80 Year
  Sex: Male

DRUGS (1)
  1. GABALON INTRATHECAL [Suspect]
     Indication: MUSCLE SPASTICITY
     Dosage: 72 MCG/DAY
     Dates: start: 20090729, end: 20131120

REACTIONS (3)
  - Cardiac failure [None]
  - Cerebral infarction [None]
  - Blood pressure decreased [None]
